FAERS Safety Report 5443007-8 (Version None)
Quarter: 2007Q3

REPORT INFORMATION
  Report Type: 
  Country: None (occurrence: None)
  Receive Date: 20070905
  Receipt Date: 20070827
  Transmission Date: 20080115
  Serious: Yes (Hospitalization, Other)
  Sender: FDA-Public Use
  Company Number: PHBS2007BR14275

PATIENT
  Age: 84 Year
  Sex: Male
  Weight: 55 kg

DRUGS (13)
  1. EXELON [Suspect]
     Indication: DEMENTIA ALZHEIMER'S TYPE
     Dosage: 3 MG/D
     Route: 048
     Dates: start: 20070201
  2. EXELON [Suspect]
     Dosage: 3 MG, BID
     Route: 048
  3. KETOCONAZOLE [Concomitant]
     Route: 061
  4. SULFADIAZINE SILVER [Concomitant]
     Indication: PROPHYLAXIS
     Route: 061
  5. REPARIL-GEL /OLD FORM/ [Concomitant]
     Dosage: UNK, UNK
     Route: 061
  6. DIPROGENTA [Concomitant]
     Route: 061
  7. CIPRO [Concomitant]
     Indication: DIVERTICULITIS
     Route: 048
  8. FLAGYL [Concomitant]
     Indication: DIVERTICULITIS
     Route: 048
  9. METICORTEN [Concomitant]
     Indication: TEMPORAL ARTERITIS
     Dosage: 20 MG, QD
     Route: 048
  10. BETOPTIC [Concomitant]
     Indication: GLAUCOMA
     Dosage: 0.5 MG/D
  11. TRAVATAN [Concomitant]
     Indication: GLAUCOMA
  12. IBERIN FOLICO [Concomitant]
     Indication: HAEMORRHAGE
     Dosage: UNK, QD
  13. CITALOPRAM [Concomitant]
     Indication: DEPRESSION
     Dosage: 20 MG, QD

REACTIONS (17)
  - ASTHENIA [None]
  - BLOOD ALBUMIN DECREASED [None]
  - BLOOD PRESSURE DECREASED [None]
  - BRADYCARDIA [None]
  - DEPRESSION [None]
  - DIVERTICULITIS [None]
  - DIZZINESS [None]
  - FEELING ABNORMAL [None]
  - HAEMORRHAGE [None]
  - HALLUCINATION [None]
  - JOINT STABILISATION [None]
  - MEMORY IMPAIRMENT [None]
  - OEDEMA PERIPHERAL [None]
  - PROTEIN TOTAL DECREASED [None]
  - SURGERY [None]
  - TENDON RUPTURE [None]
  - WEIGHT DECREASED [None]
